FAERS Safety Report 11361965 (Version 1)
Quarter: 2015Q3

REPORT INFORMATION
  Report Type: Spontaneous
  Country: US (occurrence: US)
  Receive Date: 20150810
  Receipt Date: 20150810
  Transmission Date: 20151125
  Serious: Yes (Life-Threatening)
  Sender: FDA-Public Use
  Company Number: US-FRESENIUS KABI-FK201503750

PATIENT
  Age: 56 Year
  Sex: Female

DRUGS (1)
  1. TRANEXAMIC ACID (MANUFACTURER UNKNOWN) (TRANEXAMIC ACID) (TRANEXAMIC ACID) [Suspect]
     Active Substance: TRANEXAMIC ACID
     Indication: HIP ARTHROPLASTY
     Route: 065

REACTIONS (6)
  - Coronary artery disease [None]
  - Left ventricular hypertrophy [None]
  - Hypotension [None]
  - Acute myocardial infarction [Unknown]
  - Coronary artery occlusion [None]
  - Ventricular hypokinesia [None]
